FAERS Safety Report 9644589 (Version 1)
Quarter: 2013Q4

REPORT INFORMATION
  Report Type: Spontaneous
  Country: US (occurrence: US)
  Receive Date: 20131025
  Receipt Date: 20131025
  Transmission Date: 20140711
  Serious: No
  Sender: FDA-Public Use
  Company Number: US-BAYER-2013-129046

PATIENT
  Sex: Female
  Weight: 87.98 kg

DRUGS (6)
  1. BETASERON [Suspect]
     Dosage: 0.25 MG, QOD
     Route: 058
  2. LAMICTAL [Concomitant]
     Dosage: 25 MG, UNK
  3. VITAMIN D [Concomitant]
     Dosage: 400 U, UNK
  4. PRILOSEC [Concomitant]
     Dosage: 10 MG, UNK
     Dates: start: 2011
  5. BABY ASPIRIN [Concomitant]
     Dosage: UNK MG, UNK
  6. FISH OIL [Concomitant]

REACTIONS (2)
  - Fatigue [Unknown]
  - Weight increased [Unknown]
